FAERS Safety Report 11562671 (Version 1)
Quarter: 2015Q3

REPORT INFORMATION
  Report Type: Spontaneous
  Country: PH (occurrence: PH)
  Receive Date: 20150928
  Receipt Date: 20150928
  Transmission Date: 20151125
  Serious: Yes (Death, Hospitalization)
  Sender: FDA-Public Use
  Company Number: PH-009507513-1509PHL013247

PATIENT
  Age: 79 Year
  Sex: Female

DRUGS (2)
  1. JANUVIA [Suspect]
     Active Substance: SITAGLIPTIN PHOSPHATE
     Indication: DIABETES MELLITUS
     Dosage: 100 MG, QD
     Route: 048
     Dates: end: 2015
  2. SOLOSAMET [Concomitant]
     Indication: DIABETES MELLITUS

REACTIONS (2)
  - Elderly [Fatal]
  - Diabetic complication [Unknown]

NARRATIVE: CASE EVENT DATE: 201504
